FAERS Safety Report 7937643-4 (Version None)
Quarter: 2011Q4

REPORT INFORMATION
  Report Type: 
  Country: None (occurrence: None)
  Receive Date: 20111123
  Receipt Date: 20111110
  Transmission Date: 20120403
  Serious: Yes (Other)
  Sender: FDA-Public Use
  Company Number: PHHY2011JP90813

PATIENT
  Sex: Male
  Weight: 62 kg

DRUGS (9)
  1. EXELON [Suspect]
     Dosage: 13.5MG 1 PATCH DAILY
     Route: 062
     Dates: start: 20110815, end: 20110828
  2. EXELON [Suspect]
     Dosage: 18MG 1 PATCH DAILY
     Route: 062
     Dates: start: 20110829, end: 20110921
  3. AMARYL [Concomitant]
     Indication: DIABETES MELLITUS
     Dosage: 2 MG, UNK
     Route: 048
     Dates: start: 20090410
  4. EXELON [Suspect]
     Dosage: 9 MG, DAILY
     Route: 062
     Dates: start: 20110922, end: 20110928
  5. SITAGLIPTIN PHOSPHATE [Concomitant]
     Indication: DIABETES MELLITUS
     Dosage: 50 MG, UNK
     Route: 048
     Dates: start: 20090410
  6. LEVOTOMIN [Suspect]
     Indication: PSYCHOTIC DISORDER
     Dosage: 10 MG, UNK
     Route: 048
     Dates: start: 20090410, end: 20110928
  7. EXELON [Suspect]
     Indication: DEMENTIA ALZHEIMER'S TYPE
     Dosage: 4.5 MG 1 PATCH DAILY
     Route: 062
     Dates: start: 20110726, end: 20110731
  8. SEROQUEL [Suspect]
     Dosage: 25 MG, DAILY
     Route: 048
     Dates: start: 20091001
  9. EXELON [Suspect]
     Dosage: 9MG 1 PATCH DAILY
     Route: 062
     Dates: start: 20110801, end: 20110814

REACTIONS (13)
  - PYREXIA [None]
  - DECREASED APPETITE [None]
  - NEUROLEPTIC MALIGNANT SYNDROME [None]
  - URINARY INCONTINENCE [None]
  - DEHYDRATION [None]
  - URINARY TRACT INFECTION [None]
  - MUSCLE RIGIDITY [None]
  - HYPOPHAGIA [None]
  - HYPERHIDROSIS [None]
  - DEPRESSED LEVEL OF CONSCIOUSNESS [None]
  - ABNORMAL BEHAVIOUR [None]
  - TENSION [None]
  - RESTLESSNESS [None]
